FAERS Safety Report 24989890 (Version 1)
Quarter: 2025Q1

REPORT INFORMATION
  Report Type: Spontaneous
  Country: US (occurrence: US)
  Receive Date: 20250220
  Receipt Date: 20250220
  Transmission Date: 20250408
  Serious: No
  Sender: GLAXOSMITHKLINE
  Company Number: US-GSK-US2025018810

PATIENT
  Sex: Female

DRUGS (1)
  1. NUCALA [Suspect]
     Active Substance: MEPOLIZUMAB
     Indication: Product used for unknown indication

REACTIONS (6)
  - Visual impairment [Unknown]
  - Illness [Unknown]
  - Dyspnoea [Unknown]
  - Brain fog [Unknown]
  - Dyspnoea exertional [Unknown]
  - Product dose omission issue [Unknown]
